FAERS Safety Report 7420867-2 (Version None)
Quarter: 2011Q2

REPORT INFORMATION
  Report Type: 
  Country: None (occurrence: None)
  Receive Date: 20110418
  Receipt Date: 20110409
  Transmission Date: 20111010
  Serious: Yes (Life-Threatening, Hospitalization)
  Sender: FDA-Public Use
  Company Number: SA-ROCHE-770594

PATIENT
  Age: 64 Year
  Sex: Male

DRUGS (5)
  1. PROMETHAZINE [Concomitant]
     Route: 042
     Dates: start: 20110404
  2. DEXAMETHASONE [Concomitant]
     Route: 042
     Dates: start: 20110404
  3. AVASTIN [Suspect]
     Route: 042
     Dates: start: 20110314
  4. OXALIPLATIN [Suspect]
     Route: 042
     Dates: start: 20110314
  5. RANITIDINE [Concomitant]
     Indication: PROPHYLAXIS
     Route: 042
     Dates: start: 20110404

REACTIONS (4)
  - DYSPNOEA [None]
  - HYPERTENSION [None]
  - TACHYCARDIA [None]
  - COUGH [None]
